FAERS Safety Report 20094844 (Version 1)
Quarter: 2021Q4

REPORT INFORMATION
  Report Type: Other
  Country: FR (occurrence: None)
  Receive Date: 20211122
  Receipt Date: 20211122
  Transmission Date: 20220303
  Serious: Yes (Other)
  Sender: FDA-Public Use
  Company Number: FR-ROCHE-2955683

PATIENT

DRUGS (6)
  1. TOCILIZUMAB [Suspect]
     Active Substance: TOCILIZUMAB
     Indication: Giant cell arteritis
     Route: 042
  2. TOCILIZUMAB [Suspect]
     Active Substance: TOCILIZUMAB
     Indication: Aortitis
  3. TOCILIZUMAB [Suspect]
     Active Substance: TOCILIZUMAB
     Indication: Giant cell arteritis
     Route: 058
  4. TOCILIZUMAB [Suspect]
     Active Substance: TOCILIZUMAB
     Indication: Aortitis
  5. METHOTREXATE [Suspect]
     Active Substance: METHOTREXATE
     Indication: Giant cell arteritis
     Route: 065
  6. METHOTREXATE [Suspect]
     Active Substance: METHOTREXATE
     Indication: Aortitis

REACTIONS (20)
  - Adrenocorticotropic hormone deficiency [Unknown]
  - Diabetes mellitus [Unknown]
  - Osteonecrosis [Unknown]
  - Osteoporotic fracture [Unknown]
  - Peptic ulcer [Unknown]
  - Cutaneous vasculitis [Unknown]
  - Renal cell carcinoma [Unknown]
  - Neutropenia [Unknown]
  - Hypertension [Unknown]
  - Central obesity [Unknown]
  - Myopathy [Unknown]
  - Mood altered [Unknown]
  - Cataract [Unknown]
  - Cardiovascular disorder [Unknown]
  - Infection [Unknown]
  - Thrombocytopenia [Unknown]
  - Transaminases increased [Unknown]
  - Headache [Unknown]
  - Gastrointestinal disorder [Unknown]
  - Aphthous ulcer [Unknown]
